FAERS Safety Report 21135770 (Version 1)
Quarter: 2022Q3

REPORT INFORMATION
  Report Type: Spontaneous
  Country: DE (occurrence: DE)
  Receive Date: 20220727
  Receipt Date: 20220727
  Transmission Date: 20221027
  Serious: Yes (Hospitalization)
  Sender: FDA-Public Use
  Company Number: DE-EMA-DD-20181109-kumarvn_p-123611

PATIENT
  Age: 65 Year
  Sex: Male
  Weight: 83 kg

DRUGS (18)
  1. ABIRATERONE [Suspect]
     Active Substance: ABIRATERONE
     Indication: Prostate cancer metastatic
     Dosage: 1000 MILLIGRAM, DAILY
     Route: 048
     Dates: start: 20140417, end: 20140613
  2. ABIRATERONE [Suspect]
     Active Substance: ABIRATERONE
     Dosage: 1000 MILLIGRAM, DAILY
     Route: 048
     Dates: start: 20140120, end: 20140226
  3. METAMIZOL [Concomitant]
     Active Substance: METAMIZOLE SODIUM
     Indication: Pain
     Dosage: 3 GRAM, DAILY, DOSAGE FORM: UNSPECIFIED
     Route: 065
     Dates: start: 20140227, end: 20140613
  4. ASPIRIN [Concomitant]
     Active Substance: ASPIRIN
     Indication: Arterial thrombosis
     Dosage: DOSAGE FORM: UNSPECIFIED
     Route: 065
     Dates: start: 20000101, end: 20140613
  5. FENTANYL [Concomitant]
     Active Substance: FENTANYL
     Indication: Pain
     Dosage: DOSAGE FORM: UNSPECIFIED
     Route: 065
     Dates: start: 20140528, end: 20140613
  6. PREDNISOLONE [Concomitant]
     Active Substance: PREDNISOLONE
     Indication: Product used for unknown indication
     Dosage: DOSAGE FORM: UNSPECIFIED
     Route: 065
     Dates: start: 20140120, end: 20140227
  7. XGEVA [Concomitant]
     Active Substance: DENOSUMAB
     Indication: Metastases to bone
     Dosage: DOSAGE FORM: UNSPECIFIED
     Route: 065
     Dates: start: 20130705, end: 20140613
  8. BACLOFEN [Concomitant]
     Active Substance: BACLOFEN
     Indication: Muscle relaxant therapy
     Dosage: DOSAGE FORM: UNSPECIFIED
     Route: 065
     Dates: start: 20140331, end: 20140613
  9. CHOLECALCIFEROL [Concomitant]
     Active Substance: CHOLECALCIFEROL
     Indication: Vitamin D deficiency
     Dosage: DOSAGE FORM: UNSPECIFIED, 1000 I.E.
     Route: 065
     Dates: start: 20140227, end: 20140613
  10. RANITIDINE [Concomitant]
     Active Substance: RANITIDINE
     Indication: Product used for unknown indication
     Dosage: DOSAGE FORM: UNSPECIFIED
     Route: 065
     Dates: start: 20030101, end: 20140226
  11. AMARYL [Concomitant]
     Active Substance: GLIMEPIRIDE
     Indication: Type 2 diabetes mellitus
     Dosage: DOSAGE FORM: UNSPECIFIED
     Route: 065
     Dates: start: 20131009, end: 20140613
  12. VALORON [Concomitant]
     Indication: Pain
     Dosage: DOSAGE FORM: UNSPECIFIED
     Route: 065
     Dates: start: 20140227, end: 20140613
  13. SIXANTONE [Concomitant]
     Active Substance: LEUPROLIDE ACETATE
     Indication: Prostate cancer
     Dosage: DOSAGE FORM: UNSPECIFIED
     Route: 065
     Dates: start: 20140221, end: 20140613
  14. CHOLECALCIFEROL [Concomitant]
     Active Substance: CHOLECALCIFEROL
     Indication: Osteoporosis prophylaxis
     Dosage: DOSAGE FORM: UNSPECIFIED, 1000 I.E.
     Route: 065
     Dates: start: 20140227, end: 20140613
  15. PREDNISOLONE [Concomitant]
     Active Substance: PREDNISOLONE
     Indication: Product used for unknown indication
     Dosage: DOSAGE FORM: UNSPECIFIED
     Route: 065
     Dates: start: 20140417, end: 20140613
  16. SITAGLIPTIN [Concomitant]
     Active Substance: SITAGLIPTIN
     Indication: Type 2 diabetes mellitus
     Dosage: DOSAGE FORM: UNSPECIFIED
     Route: 065
     Dates: start: 20030101, end: 20140613
  17. PANTOZOL [Concomitant]
     Active Substance: PANTOPRAZOLE SODIUM
     Indication: Gastrooesophageal reflux disease
     Dosage: DOSAGE FORM: UNSPECIFIED
     Route: 065
     Dates: start: 20140331, end: 20140613
  18. FUROSEMIDE [Concomitant]
     Active Substance: FUROSEMIDE
     Indication: Oedema
     Dosage: DOSAGE FORM: UNSPECIFIED
     Route: 065
     Dates: start: 20140224, end: 20140225

REACTIONS (1)
  - Peripheral swelling [Recovered/Resolved with Sequelae]

NARRATIVE: CASE EVENT DATE: 20140327
